FAERS Safety Report 8267087-X (Version None)
Quarter: 2012Q2

REPORT INFORMATION
  Report Type: 
  Country: None (occurrence: None)
  Receive Date: 20120409
  Receipt Date: 20120328
  Transmission Date: 20120825
  Serious: Yes (Hospitalization)
  Sender: FDA-Public Use
  Company Number: US-ELI_LILLY_AND_COMPANY-US201107002286

PATIENT
  Sex: Female

DRUGS (7)
  1. LEVOXYL [Concomitant]
  2. VITAMIN D [Concomitant]
  3. FORTEO [Suspect]
     Dosage: 20 UG, QD
     Dates: end: 20120321
  4. AMLODIPINE [Concomitant]
  5. CALCIUM CARBONATE [Concomitant]
  6. FORTEO [Suspect]
     Indication: OSTEOPOROSIS
     Dosage: 20 UG, QD
     Dates: start: 20110201
  7. ANTIBIOTICS [Concomitant]

REACTIONS (6)
  - WEIGHT INCREASED [None]
  - BLOOD CALCIUM INCREASED [None]
  - GALLBLADDER OPERATION [None]
  - PAIN [None]
  - ABDOMINAL PAIN UPPER [None]
  - DRUG DOSE OMISSION [None]
